FAERS Safety Report 8578889-4 (Version None)
Quarter: 2012Q3

REPORT INFORMATION
  Report Type: 
  Country: None (occurrence: None)
  Receive Date: 20120808
  Receipt Date: 20120731
  Transmission Date: 20120928
  Serious: Yes (Hospitalization, Other)
  Sender: FDA-Public Use
  Company Number: US-BAYER-2012-070531

PATIENT
  Age: 77 Year
  Sex: Male

DRUGS (3)
  1. NEXAVAR [Suspect]
     Indication: HEPATIC NEOPLASM MALIGNANT
     Dosage: 200 MG, BID
     Dates: start: 20120714, end: 20120718
  2. LACTULOSE [Concomitant]
  3. NEXAVAR [Suspect]
     Dosage: 200 MG, QOD
     Dates: start: 20120724

REACTIONS (3)
  - AMMONIA INCREASED [None]
  - APHAGIA [None]
  - CONFUSIONAL STATE [None]
